FAERS Safety Report 5287048-2 (Version None)
Quarter: 2007Q1

REPORT INFORMATION
  Report Type: 
  Country: None (occurrence: None)
  Receive Date: 20070330
  Receipt Date: 20070326
  Transmission Date: 20070707
  Serious: Yes (Hospitalization, Other)
  Sender: FDA-Public Use
  Company Number: 236199

PATIENT
  Age: 90 Year
  Sex: Female
  Weight: 63.5 kg

DRUGS (1)
  1. AVASTIN [Suspect]
     Indication: HEPATIC NEOPLASM MALIGNANT
     Dates: start: 20070201

REACTIONS (1)
  - BLOOD BLISTER [None]
